FAERS Safety Report 4487931-1 (Version None)
Quarter: 2004Q4

REPORT INFORMATION
  Report Type: 
  Country: None (occurrence: None)
  Receive Date: 20041026
  Receipt Date: 20041007
  Transmission Date: 20050328
  Serious: Yes (Disabling, Other)
  Sender: FDA-Public Use
  Company Number: USA040876982

PATIENT
  Age: 55 Year
  Sex: Female

DRUGS (2)
  1. EVISTA [Suspect]
     Indication: OSTEOPOROSIS PROPHYLAXIS
     Route: 065
  2. SYNTHROID [Concomitant]

REACTIONS (3)
  - BLINDNESS UNILATERAL [None]
  - RETINAL VEIN OCCLUSION [None]
  - RETINAL VEIN THROMBOSIS [None]
